FAERS Safety Report 17775570 (Version 2)
Quarter: 2020Q2

REPORT INFORMATION
  Report Type: Report from Study
  Country: ES (occurrence: ES)
  Receive Date: 20200513
  Receipt Date: 20200610
  Transmission Date: 20200714
  Serious: Yes (Hospitalization)
  Sender: FDA-Public Use
  Company Number: ES-ROCHE-2597858

PATIENT
  Age: 69 Year
  Sex: Male

DRUGS (3)
  1. GEMCITABINE. [Suspect]
     Active Substance: GEMCITABINE
     Indication: MALIGNANT NEOPLASM OF UNKNOWN PRIMARY SITE
     Dosage: ON 04/MAR/2020, RECEIVED MOST RECENT DOSE OF GEMCITAMINE (1488 MG) PRIOR TO SERIOUS ADVERSE EVENT
     Route: 042
     Dates: start: 20200304
  2. ATEZOLIZUMAB. [Suspect]
     Active Substance: ATEZOLIZUMAB
     Indication: MALIGNANT NEOPLASM OF UNKNOWN PRIMARY SITE
     Dosage: DATE OF LAST DOSE PRIOR TO SAE: 15/APR/2020
     Route: 042
     Dates: start: 20200415
  3. CISPLATIN. [Suspect]
     Active Substance: CISPLATIN
     Indication: MALIGNANT NEOPLASM OF UNKNOWN PRIMARY SITE
     Dosage: DOSE: 60-75 MG/M2?ON 26/FEB/2020, RECEIVED MOST RECENT DOSE OF CISPLATIN (112 MG) PRIOR TO SERIOUS A
     Route: 042
     Dates: start: 20200226

REACTIONS (1)
  - Tubulointerstitial nephritis [Recovered/Resolved]

NARRATIVE: CASE EVENT DATE: 20200505
